FAERS Safety Report 8976413 (Version 1)
Quarter: 2012Q4

REPORT INFORMATION
  Report Type: 
  Country: US (occurrence: US)
  Receive Date: 20121219
  Receipt Date: 20121219
  Transmission Date: 20130627
  Serious: No
  Sender: FDA-Public Use
  Company Number: US-AMGEN-USASP2012057532

PATIENT
  Age: 86 Year
  Sex: Male
  Weight: 79.55 kg

DRUGS (8)
  1. XGEVA [Suspect]
     Indication: METASTASES TO BONE
     Dosage: 120 mg, qmo
     Route: 058
     Dates: start: 20110823
  2. ALLOPURINOL [Concomitant]
     Dosage: 100 mg, qd
     Route: 048
  3. DIOVAN [Concomitant]
     Dosage: 80 mg, qd
     Route: 048
  4. TRAMADOL [Concomitant]
     Dosage: UNK UNK, prn
     Route: 048
  5. LUPRON [Concomitant]
     Dosage: 22.5 g, q2wk
     Route: 030
  6. PREDNISONE [Concomitant]
     Dosage: 5 mg, qd
     Route: 048
  7. CALCIUM [Concomitant]
     Dosage: UNK
  8. CENTRUM SILVER                     /02363801/ [Concomitant]
     Route: 048

REACTIONS (1)
  - Blood calcium decreased [Recovering/Resolving]
